FAERS Safety Report 14661400 (Version 7)
Quarter: 2019Q2

REPORT INFORMATION
  Report Type: Report from Study
  Country: US (occurrence: US)
  Receive Date: 20180320
  Receipt Date: 20190619
  Transmission Date: 20190711
  Serious: Yes (Other)
  Sender: FDA-Public Use
  Company Number: PHEH2018US009276

PATIENT
  Sex: Female

DRUGS (1)
  1. OMNITROPE [Suspect]
     Active Substance: SOMATROPIN
     Indication: PRODUCT USED FOR UNKNOWN INDICATION
     Route: 065

REACTIONS (22)
  - Thinking abnormal [Unknown]
  - Pain [Unknown]
  - Malaise [Unknown]
  - Blood pressure increased [Unknown]
  - Hydrocephalus [Unknown]
  - Fatigue [Unknown]
  - Stress [Unknown]
  - Device issue [Unknown]
  - Influenza [Unknown]
  - Oral pain [Unknown]
  - Seizure [Unknown]
  - Pneumonia [Unknown]
  - Insomnia [Unknown]
  - Dehydration [Unknown]
  - Needle issue [Unknown]
  - Abdominal pain [Unknown]
  - Infection [Unknown]
  - General physical health deterioration [Unknown]
  - Spinal cord injury [Unknown]
  - Tooth fracture [Unknown]
  - Asthenia [Unknown]
  - Injection site bruising [Unknown]
